FAERS Safety Report 4744248-5 (Version None)
Quarter: 2005Q3

REPORT INFORMATION
  Report Type: 
  Country: None (occurrence: None)
  Receive Date: 20050809
  Receipt Date: 20050803
  Transmission Date: 20060218
  Serious: Yes (Hospitalization)
  Sender: FDA-Public Use
  Company Number: 2005RL000097

PATIENT
  Sex: Female

DRUGS (4)
  1. NIZATIDINE [Suspect]
     Indication: REFLUX OESOPHAGITIS
     Dosage: 150 MG;HS;PO
     Route: 048
     Dates: start: 20050628, end: 20050629
  2. ACARBOSE                (ACARBOSE) [Suspect]
     Indication: DIABETES MELLITUS
     Dosage: 100 MG;TID
     Dates: start: 20050601, end: 20050629
  3. TEPRENONE [Concomitant]
  4. INSULIN [Concomitant]

REACTIONS (1)
  - LEUKOPENIA [None]
